FAERS Safety Report 11131509 (Version 2)
Quarter: 2015Q2

REPORT INFORMATION
  Report Type: Report from Study
  Country: FR (occurrence: None)
  Receive Date: 20150520
  Receipt Date: 20150609
  Transmission Date: 20150821
  Serious: Yes (Hospitalization, Other)
  Sender: FDA-Public Use
  Company Number: FR2015GSK028554

PATIENT
  Age: 54 Year
  Sex: Female

DRUGS (4)
  1. NEVIRAPINE. [Concomitant]
     Active Substance: NEVIRAPINE
  2. RITONAVIR. [Concomitant]
     Active Substance: RITONAVIR
  3. DARUNAVIR [Concomitant]
     Active Substance: DARUNAVIR
  4. MARAVIROC [Suspect]
     Active Substance: MARAVIROC
     Route: 048
     Dates: start: 20100122

REACTIONS (3)
  - Vulval abscess [None]
  - Polyneuropathy [None]
  - Vaginal fistula [None]

NARRATIVE: CASE EVENT DATE: 20140919
